FAERS Safety Report 16056505 (Version 1)
Quarter: 2019Q2

REPORT INFORMATION
  Report Type: Spontaneous
  Country: US (occurrence: US)
  Receive Date: 20190309
  Receipt Date: 20190309
  Transmission Date: 20190711
  Serious: Yes (Other)
  Sender: FDA-Public Use
  Company Number: None

PATIENT
  Age: 77 Year
  Sex: Male
  Weight: 101.25 kg

DRUGS (11)
  1. DIGOXIN 250MCG X 1/DAY [Concomitant]
  2. TRICOR 145MG X 1/DAY [Concomitant]
  3. CARVEDILOL 25MG X 2/DAY [Concomitant]
  4. ZETIA 10MG X 1/DAY [Concomitant]
  5. SOTALOL 80 MG X 2/DAY [Concomitant]
  6. LISINOPRIL 10MG X 1/DAY [Concomitant]
  7. FUROSEMIDE 20MG X 1/DAY [Concomitant]
  8. WARFARIN 5MG X 1/DAY [Concomitant]
  9. ENTRESTO [Suspect]
     Active Substance: SACUBITRIL\VALSARTAN
     Indication: CARDIAC FAILURE CONGESTIVE
     Dosage: ?          QUANTITY:14 TABLET(S);?
     Route: 048
     Dates: start: 20190301, end: 20190308
  10. PENTOXIFYLLINE 400 MG X 3/DAY [Concomitant]
  11. LOVAZA 1GM X 2/DAY [Concomitant]

REACTIONS (3)
  - Tremor [None]
  - Oedema peripheral [None]
  - Condition aggravated [None]

NARRATIVE: CASE EVENT DATE: 20190307
